FAERS Safety Report 19768080 (Version 2)
Quarter: 2021Q4

REPORT INFORMATION
  Report Type: Spontaneous
  Country: US (occurrence: US)
  Receive Date: 20210831
  Receipt Date: 20211124
  Transmission Date: 20220303
  Serious: Yes (Other)
  Sender: FDA-Public Use
  Company Number: US-GLAXOSMITHKLINE-US2021GSK184214

PATIENT
  Sex: Female

DRUGS (30)
  1. ZANTAC [Suspect]
     Active Substance: RANITIDINE HYDROCHLORIDE
     Indication: Dyspepsia
     Dosage: 75 MG, QD
     Route: 065
     Dates: start: 199801, end: 200302
  2. ZANTAC [Suspect]
     Active Substance: RANITIDINE HYDROCHLORIDE
     Indication: Gastrooesophageal reflux disease
     Dosage: 300 MG, PERIODS OF NON-USE (AT LEAST 3 MONTHS WITHOUT USE)
     Route: 065
     Dates: start: 199201, end: 200401
  3. ZANTAC [Suspect]
     Active Substance: RANITIDINE HYDROCHLORIDE
     Indication: Dyspepsia
     Dosage: UNK, PERIODS OF NON-USE (AT LEAST 3 MONTHS WITHOUT USE)
     Route: 065
     Dates: start: 199201, end: 200401
  4. ZANTAC [Suspect]
     Active Substance: RANITIDINE HYDROCHLORIDE
     Indication: Abdominal discomfort
  5. ZANTAC [Suspect]
     Active Substance: RANITIDINE HYDROCHLORIDE
     Indication: Barth syndrome
  6. ZANTAC [Suspect]
     Active Substance: RANITIDINE HYDROCHLORIDE
     Indication: Dyspepsia
     Dosage: 75 MG, QD
     Route: 065
     Dates: start: 199801, end: 200302
  7. ZANTAC [Suspect]
     Active Substance: RANITIDINE HYDROCHLORIDE
     Indication: Gastrooesophageal reflux disease
     Dosage: 300 MG, PERIODS OF NON-USE (AT LEAST 3 MONTHS WITHOUT USE)
     Route: 065
     Dates: start: 199201, end: 200401
  8. ZANTAC [Suspect]
     Active Substance: RANITIDINE HYDROCHLORIDE
     Indication: Dyspepsia
     Dosage: UNK, PERIODS OF NON-USE (AT LEAST 3 MONTHS WITHOUT USE)
     Route: 065
     Dates: start: 199201, end: 200401
  9. ZANTAC [Suspect]
     Active Substance: RANITIDINE HYDROCHLORIDE
     Indication: Abdominal discomfort
  10. ZANTAC [Suspect]
     Active Substance: RANITIDINE HYDROCHLORIDE
     Indication: Barth syndrome
  11. RANITIDINE [Suspect]
     Active Substance: RANITIDINE
     Indication: Dyspepsia
     Dosage: 75 MG, QD
     Route: 065
     Dates: start: 199801, end: 200302
  12. RANITIDINE [Suspect]
     Active Substance: RANITIDINE
     Indication: Gastrooesophageal reflux disease
     Dosage: 300 MG, PERIODS OF NON-USE (AT LEAST 3 MONTHS WITHOUT USE)
     Route: 065
     Dates: start: 199201, end: 200401
  13. RANITIDINE [Suspect]
     Active Substance: RANITIDINE
     Indication: Dyspepsia
     Dosage: UNK, PERIODS OF NON-USE (AT LEAST 3 MONTHS WITHOUT USE)
     Route: 065
     Dates: start: 199201, end: 200401
  14. RANITIDINE [Suspect]
     Active Substance: RANITIDINE
     Indication: Abdominal discomfort
  15. RANITIDINE [Suspect]
     Active Substance: RANITIDINE
     Indication: Barth syndrome
  16. RANITIDINE [Suspect]
     Active Substance: RANITIDINE
     Indication: Dyspepsia
     Dosage: 75 MG, QD
     Route: 065
     Dates: start: 199801, end: 200302
  17. RANITIDINE [Suspect]
     Active Substance: RANITIDINE
     Indication: Gastrooesophageal reflux disease
     Dosage: 300 MG, PERIODS OF NON-USE (AT LEAST 3 MONTHS WITHOUT USE)
     Route: 065
     Dates: start: 199201, end: 200401
  18. RANITIDINE [Suspect]
     Active Substance: RANITIDINE
     Indication: Dyspepsia
     Dosage: UNK, PERIODS OF NON-USE (AT LEAST 3 MONTHS WITHOUT USE)
     Route: 065
     Dates: start: 199201, end: 200401
  19. RANITIDINE [Suspect]
     Active Substance: RANITIDINE
     Indication: Abdominal discomfort
  20. RANITIDINE [Suspect]
     Active Substance: RANITIDINE
     Indication: Barth syndrome
  21. RANITIDINE [Suspect]
     Active Substance: RANITIDINE
     Indication: Dyspepsia
     Dosage: 300 MG, PERIODS OF NON-USE (AT LEAST 3 MONTHS WITHOUT USE)
     Route: 065
     Dates: start: 199201, end: 200401
  22. RANITIDINE [Suspect]
     Active Substance: RANITIDINE
     Indication: Gastrooesophageal reflux disease
     Dosage: UNK, PERIODS OF NON-USE (AT LEAST 3 MONTHS WITHOUT USE)
     Route: 065
     Dates: start: 199201, end: 200401
  23. RANITIDINE [Suspect]
     Active Substance: RANITIDINE
     Indication: Dyspepsia
  24. RANITIDINE [Suspect]
     Active Substance: RANITIDINE
     Indication: Abdominal discomfort
  25. RANITIDINE [Suspect]
     Active Substance: RANITIDINE
     Indication: Barth syndrome
  26. RANITIDINE [Suspect]
     Active Substance: RANITIDINE
     Indication: Dyspepsia
     Dosage: 300 MG, PERIODS OF NON-USE (AT LEAST 3 MONTHS WITHOUT USE)
     Route: 065
     Dates: start: 199201, end: 200401
  27. RANITIDINE [Suspect]
     Active Substance: RANITIDINE
     Indication: Gastrooesophageal reflux disease
     Dosage: UNK, PERIODS OF NON-USE (AT LEAST 3 MONTHS WITHOUT USE)
     Route: 065
     Dates: start: 199201, end: 200401
  28. RANITIDINE [Suspect]
     Active Substance: RANITIDINE
     Indication: Dyspepsia
  29. RANITIDINE [Suspect]
     Active Substance: RANITIDINE
     Indication: Abdominal discomfort
  30. RANITIDINE [Suspect]
     Active Substance: RANITIDINE
     Indication: Barth syndrome

REACTIONS (5)
  - Breast cancer [Unknown]
  - Skin cancer [Unknown]
  - Tongue neoplasm malignant stage unspecified [Unknown]
  - Lip and/or oral cavity cancer [Unknown]
  - Basal cell carcinoma [Unknown]
